FAERS Safety Report 11673501 (Version 1)
Quarter: 2015Q4

REPORT INFORMATION
  Report Type: Spontaneous
  Country: US (occurrence: US)
  Receive Date: 20151028
  Receipt Date: 20151028
  Transmission Date: 20160304
  Serious: Yes (Other)
  Sender: FDA-Public Use
  Company Number: PHEH2015US020959

PATIENT
  Sex: Female
  Weight: 70 kg

DRUGS (2)
  1. AROMASIN [Suspect]
     Active Substance: EXEMESTANE
     Indication: BREAST CANCER
     Dosage: 1 DF, QD
     Route: 048
  2. AFINITOR [Suspect]
     Active Substance: EVEROLIMUS
     Indication: BREAST CANCER
     Route: 065

REACTIONS (9)
  - Viral infection [Not Recovered/Not Resolved]
  - Metastases to bone [Not Recovered/Not Resolved]
  - Drug ineffective [Not Recovered/Not Resolved]
  - Rib fracture [Not Recovered/Not Resolved]
  - Lung neoplasm malignant [Unknown]
  - Neoplasm [Not Recovered/Not Resolved]
  - Back pain [Not Recovered/Not Resolved]
  - Skin infection [Not Recovered/Not Resolved]
  - Second primary malignancy [Not Recovered/Not Resolved]
